FAERS Safety Report 7774575-9 (Version None)
Quarter: 2011Q3

REPORT INFORMATION
  Report Type: 
  Country: None (occurrence: None)
  Receive Date: 20110923
  Receipt Date: 20110913
  Transmission Date: 20111222
  Serious: Yes (Hospitalization, Other)
  Sender: FDA-Public Use
  Company Number: JP-ROCHE-802413

PATIENT
  Sex: Female
  Weight: 44 kg

DRUGS (10)
  1. IODINE [Concomitant]
     Route: 061
     Dates: start: 20100609
  2. GEMZAR [Concomitant]
     Dosage: DOSAGE IS UNCERTAIN.
     Route: 042
     Dates: start: 20110816
  3. VINORELBINE [Suspect]
     Dosage: DOSAGE IS UNCERTAIN.
     Route: 042
     Dates: start: 20110524, end: 20110623
  4. LENDORMIN [Concomitant]
     Dosage: UNCERTAIN DOSAGE AND SINGLE USE
     Route: 048
     Dates: start: 20100610
  5. TRASTUZUMAB [Suspect]
     Dosage: DOSAGE IS UNCERTAIN
     Route: 042
     Dates: start: 20110524, end: 20110816
  6. PLACEBO [Suspect]
     Route: 042
     Dates: end: 20110420
  7. DOCETAXEL [Suspect]
     Route: 042
     Dates: start: 20100630, end: 20110420
  8. TRASTUZUMAB [Suspect]
     Route: 042
     Dates: start: 20100630, end: 20100630
  9. TRASTUZUMAB [Suspect]
     Route: 042
     Dates: end: 20110420
  10. PLACEBO [Suspect]
     Route: 042
     Dates: start: 20100629, end: 20100629

REACTIONS (6)
  - ANGINA PECTORIS [None]
  - VASCULITIS [None]
  - ELECTROCARDIOGRAM T WAVE INVERSION [None]
  - CHEST DISCOMFORT [None]
  - PALPITATIONS [None]
  - MALAISE [None]
